FAERS Safety Report 9908009 (Version 1)
Quarter: 2014Q1

REPORT INFORMATION
  Report Type: Spontaneous
  Country: BR (occurrence: BR)
  Receive Date: 20140219
  Receipt Date: 20140219
  Transmission Date: 20141002
  Serious: Yes (Hospitalization, Other)
  Sender: FDA-Public Use
  Company Number: BR-ASTRAZENECA-2014SE11034

PATIENT
  Age: 77 Year
  Sex: Male
  Weight: 56 kg

DRUGS (6)
  1. BRILINTA [Suspect]
     Indication: CARDIOVASCULAR EVENT PROPHYLAXIS
     Route: 048
     Dates: start: 20131122
  2. SIMVASTATIN [Concomitant]
     Indication: CARDIOVASCULAR EVENT PROPHYLAXIS
     Route: 048
     Dates: start: 20131122
  3. ASA INFANTIL [Concomitant]
     Route: 048
  4. CARVEDILOL [Concomitant]
     Route: 048
  5. RENITEC [Concomitant]
     Route: 048
  6. DIGOXIN [Concomitant]
     Route: 048
     Dates: end: 20131121

REACTIONS (10)
  - Myocardial infarction [Recovered/Resolved]
  - Aortic aneurysm rupture [Recovered/Resolved]
  - Pneumonia [Recovered/Resolved]
  - Weight decreased [Not Recovered/Not Resolved]
  - Haematemesis [Recovered/Resolved]
  - Retching [Not Recovered/Not Resolved]
  - Dyspnoea [Not Recovered/Not Resolved]
  - Decreased appetite [Not Recovered/Not Resolved]
  - Pruritus generalised [Not Recovered/Not Resolved]
  - Skin haemorrhage [Not Recovered/Not Resolved]
